FAERS Safety Report 17796048 (Version 1)
Quarter: 2020Q2

REPORT INFORMATION
  Report Type: Other
  Country: ES (occurrence: ES)
  Receive Date: 20200517
  Receipt Date: 20200517
  Transmission Date: 20200714
  Serious: Yes (Other)
  Sender: FDA-Public Use
  Company Number: ES-CADILA HEALTHCARE LIMITED-ES-ZYDUS-050934

PATIENT

DRUGS (14)
  1. PROPOFOL. [Suspect]
     Active Substance: PROPOFOL
     Indication: ANALGESIC THERAPY
     Dosage: UNK
     Route: 065
     Dates: start: 20200328
  2. MIDAZOLAM. [Suspect]
     Active Substance: MIDAZOLAM
     Indication: ANALGESIC THERAPY
  3. SIMVASTATINA [Concomitant]
     Active Substance: SIMVASTATIN
     Indication: PRODUCT USED FOR UNKNOWN INDICATION
     Route: 065
  4. CORTICA [Concomitant]
     Indication: CORONAVIRUS INFECTION
     Dosage: CORTICOIDES A DOSIS BAJAS
     Route: 065
     Dates: start: 20200328
  5. MANIDON HTA [Concomitant]
     Active Substance: VERAPAMIL HYDROCHLORIDE
     Indication: PRODUCT USED FOR UNKNOWN INDICATION
     Dosage: UNK
     Route: 065
  6. RILAST [Concomitant]
     Active Substance: BUDESONIDE\FORMOTEROL
     Route: 065
  7. DOLQUINE [Suspect]
     Active Substance: HYDROXYCHLOROQUINE SULFATE
     Indication: CORONAVIRUS INFECTION
     Dosage: 200 MILLIGRAM
     Route: 048
     Dates: start: 20200328, end: 20200331
  8. KALPRESS [Concomitant]
     Active Substance: VALSARTAN
     Indication: PRODUCT USED FOR UNKNOWN INDICATION
     Dosage: UNK
     Route: 065
  9. MIDAZOLAM. [Suspect]
     Active Substance: MIDAZOLAM
     Indication: CORONAVIRUS INFECTION
     Route: 065
     Dates: start: 20200328
  10. AZITHROMYCIN ANHYDROUS. [Suspect]
     Active Substance: AZITHROMYCIN ANHYDROUS
     Indication: CORONAVIRUS INFECTION
     Dosage: UNK
     Route: 065
     Dates: start: 2020
  11. KALETRA [Suspect]
     Active Substance: LOPINAVIR\RITONAVIR
     Indication: CORONAVIRUS INFECTION
     Dosage: UNK
     Route: 048
     Dates: start: 20200330
  12. CEFTRIAXONA [CEFTRIAXONE] [Suspect]
     Active Substance: CEFTRIAXONE
     Indication: CORONAVIRUS INFECTION
     Dosage: UNK
     Route: 065
     Dates: start: 2020
  13. PROPOFOL. [Suspect]
     Active Substance: PROPOFOL
     Indication: CORONAVIRUS INFECTION
  14. OMNIC OCAS [Concomitant]
     Active Substance: TAMSULOSIN HYDROCHLORIDE
     Indication: PRODUCT USED FOR UNKNOWN INDICATION
     Route: 065

REACTIONS (2)
  - Bradycardia [Recovered/Resolved]
  - Long QT syndrome [Recovered/Resolved]

NARRATIVE: CASE EVENT DATE: 20200331
